FAERS Safety Report 4851508-6 (Version None)
Quarter: 2005Q4

REPORT INFORMATION
  Report Type: 
  Country: None (occurrence: None)
  Receive Date: 20051212
  Receipt Date: 20051006
  Transmission Date: 20060501
  Serious: Yes (Disabling, Other)
  Sender: FDA-Public Use
  Company Number: PHEH2005US11221

PATIENT
  Age: 61 Year
  Sex: Female

DRUGS (3)
  1. ZOMETA [Suspect]
     Indication: METASTASES TO BONE
     Dosage: 4 MG, QMO
     Dates: start: 20040521, end: 20050304
  2. AREDIA [Suspect]
     Indication: BREAST CANCER
     Dosage: 90 MG, QMO
     Dates: start: 20050304, end: 20050513
  3. AROMASIN [Concomitant]
     Dosage: 25 UNK, UNK
     Dates: start: 20040521

REACTIONS (10)
  - BONE DISORDER [None]
  - ENANTHEMA [None]
  - EPISTAXIS [None]
  - GINGIVAL INFECTION [None]
  - ORAL PAIN [None]
  - OSTEOMYELITIS [None]
  - OSTEONECROSIS [None]
  - SINUS DISORDER [None]
  - SOFT TISSUE DISORDER [None]
  - SWELLING [None]
